FAERS Safety Report 15186473 (Version 1)
Quarter: 2018Q3

REPORT INFORMATION
  Report Type: Report from Study
  Country: US (occurrence: US)
  Receive Date: 20180723
  Receipt Date: 20180723
  Transmission Date: 20181010
  Serious: No
  Sender: FDA-Public Use
  Company Number: US-EXELIXIS-CABO-18012704

PATIENT
  Sex: Male

DRUGS (2)
  1. CHLORPROMAZINE. [Concomitant]
     Active Substance: CHLORPROMAZINE
     Dosage: UNK
  2. CABOMETYX [Suspect]
     Active Substance: CABOZANTINIB S-MALATE
     Indication: RENAL CANCER
     Dosage: 1 TAB OF 20 MG AND 1 TAB OF 60 MG
     Route: 048
     Dates: start: 20171010

REACTIONS (2)
  - Fatigue [Unknown]
  - Diarrhoea [Unknown]
